FAERS Safety Report 19815923 (Version 2)
Quarter: 2021Q3

REPORT INFORMATION
  Report Type: Spontaneous
  Country: CN (occurrence: CN)
  Receive Date: 20210909
  Receipt Date: 20210920
  Transmission Date: 20211014
  Serious: Yes (Life-Threatening, Other)
  Sender: FDA-Public Use
  Company Number: CN-SA-2021SA298623

PATIENT
  Age: 22 Year
  Sex: Female

DRUGS (5)
  1. ELOXATIN [Suspect]
     Active Substance: OXALIPLATIN
     Indication: HEPATOCELLULAR CARCINOMA
  2. ELOXATIN [Suspect]
     Active Substance: OXALIPLATIN
     Indication: LIVER OPERATION
     Dosage: 125 MG
     Dates: start: 20210805
  3. GLUCOSE [Concomitant]
     Active Substance: DEXTROSE
     Indication: VEHICLE SOLUTION USE
     Dosage: UNK
     Dates: start: 20210805
  4. FLUOROURACIL. [Suspect]
     Active Substance: FLUOROURACIL
     Indication: LIVER OPERATION
     Dosage: UNK
     Dates: start: 20210805
  5. FLUOROURACIL. [Suspect]
     Active Substance: FLUOROURACIL
     Indication: HEPATOCELLULAR CARCINOMA

REACTIONS (5)
  - Pyrexia [Unknown]
  - Off label use [Unknown]
  - Myelosuppression [Unknown]
  - White blood cell count decreased [Unknown]
  - Platelet count decreased [Unknown]

NARRATIVE: CASE EVENT DATE: 20210905
